FAERS Safety Report 20919860 (Version 1)
Quarter: 2022Q2

REPORT INFORMATION
  Report Type: Spontaneous
  Country: CN (occurrence: CN)
  Receive Date: 20220606
  Receipt Date: 20220606
  Transmission Date: 20220721
  Serious: Yes (Hospitalization)
  Sender: FDA-Public Use
  Company Number: CN-PFIZER INC-202200784950

PATIENT
  Age: 67 Year
  Sex: Male
  Weight: 51 kg

DRUGS (7)
  1. ZYVOX [Suspect]
     Active Substance: LINEZOLID
     Indication: Pulmonary tuberculosis
     Dosage: 0.6 G, 1X/DAY
     Route: 048
     Dates: start: 20220415
  2. LIPITOR [Suspect]
     Active Substance: ATORVASTATIN CALCIUM
     Indication: Carotid arteriosclerosis
     Dosage: 20 MG, 1X/DAY
     Route: 048
     Dates: start: 20220417
  3. URSODIOL [Suspect]
     Active Substance: URSODIOL
     Indication: Type 2 diabetes mellitus
     Dosage: 0.25 G, 2X/DAY
     Route: 048
     Dates: start: 20220415
  4. ETHAMBUTOL HYDROCHLORIDE [Suspect]
     Active Substance: ETHAMBUTOL HYDROCHLORIDE
     Indication: Type 2 diabetes mellitus
     Dosage: 0.75 G, 1X/DAY
     Route: 048
     Dates: start: 20220415
  5. RIFAMPIN [Concomitant]
     Active Substance: RIFAMPIN
     Indication: Pulmonary tuberculosis
     Dosage: 450 MG, 1X/DAY
     Route: 048
     Dates: start: 20220415, end: 20220426
  6. PYRAZINAMIDE [Concomitant]
     Active Substance: PYRAZINAMIDE
     Indication: Type 2 diabetes mellitus
     Dosage: 1.5 G, 1X/DAY
     Route: 048
     Dates: start: 20220415, end: 20220426
  7. ISONIAZID [Concomitant]
     Active Substance: ISONIAZID
     Indication: Pulmonary tuberculosis
     Dosage: 300 MG, 1X/DAY
     Route: 048
     Dates: start: 20220415, end: 20220426

REACTIONS (3)
  - Dizziness [Recovering/Resolving]
  - Discomfort [Recovering/Resolving]
  - Off label use [Unknown]

NARRATIVE: CASE EVENT DATE: 20220415
